FAERS Safety Report 17077317 (Version 1)
Quarter: 2019Q4

REPORT INFORMATION
  Report Type: Spontaneous
  Country: US (occurrence: US)
  Receive Date: 20191126
  Receipt Date: 20191126
  Transmission Date: 20200122
  Serious: No
  Sender: FDA-Public Use
  Company Number: US-AMGEN-USASP2019195287

PATIENT
  Age: 76 Year
  Sex: Female

DRUGS (2)
  1. CITRACAL [CALCIUM;COLECALCIFEROL] [Concomitant]
     Dosage: UNK, TWO TABLETS
  2. PROLIA [Suspect]
     Active Substance: DENOSUMAB
     Indication: OSTEOPOROSIS POSTMENOPAUSAL
     Dosage: UNK
     Route: 065
     Dates: start: 201903, end: 2019

REACTIONS (2)
  - Tooth fracture [Unknown]
  - Device failure [Unknown]

NARRATIVE: CASE EVENT DATE: 20191118
